FAERS Safety Report 6998541-6 (Version None)
Quarter: 2010Q3

REPORT INFORMATION
  Report Type: 
  Country: None (occurrence: None)
  Receive Date: 20100920
  Receipt Date: 20090914
  Transmission Date: 20110219
  Serious: Yes (Hospitalization)
  Sender: FDA-Public Use
  Company Number: US-ASTRAZENECA-2009SE15820

PATIENT
  Age: 21 Year
  Sex: Female
  Weight: 49.9 kg

DRUGS (2)
  1. SEROQUEL XR [Suspect]
     Route: 048
     Dates: start: 20080501, end: 20090908
  2. RISPERDAL [Suspect]
     Dates: start: 20090909

REACTIONS (1)
  - VOMITING [None]
